FAERS Safety Report 9412627 (Version 1)
Quarter: 2013Q3

REPORT INFORMATION
  Report Type: Spontaneous
  Country: US (occurrence: US)
  Receive Date: 20130722
  Receipt Date: 20130722
  Transmission Date: 20140515
  Serious: No
  Sender: FDA-Public Use
  Company Number: US-TARO-2012P1054710

PATIENT
  Age: 69 Year
  Sex: Male
  Weight: 82.1 kg

DRUGS (8)
  1. CLOTRIMAZOLE AND BETAMETHASONE DIPROPIONATE [Suspect]
     Indication: FUNGAL INFECTION
     Route: 061
     Dates: start: 201207, end: 201207
  2. CLOTRIMAZOLE AND BETAMETHASONE DIPROPIONATE [Suspect]
     Route: 061
     Dates: start: 201207, end: 201207
  3. CLOTRIMAZOLE AND BETAMETHASONE DIPROPIONATE [Suspect]
     Route: 061
     Dates: start: 201207, end: 201207
  4. CLOPIDOGREL [Concomitant]
     Dates: start: 2009
  5. ISOSORBIDE MONONITRATE ER [Concomitant]
  6. CRESTOR [Concomitant]
  7. PANTOPRAZOLE DR [Concomitant]
  8. ASPIRIN [Concomitant]

REACTIONS (1)
  - Application site erythema [Not Recovered/Not Resolved]
